FAERS Safety Report 12611486 (Version 2)
Quarter: 2016Q3

REPORT INFORMATION
  Report Type: Spontaneous
  Country: FI (occurrence: FI)
  Receive Date: 20160801
  Receipt Date: 20160812
  Transmission Date: 20161109
  Serious: Yes (Hospitalization)
  Sender: FDA-Public Use
  Company Number: FI-SA-2016SA134571

PATIENT
  Age: 69 Year
  Sex: Male

DRUGS (20)
  1. DIFORMIN RETARD [Concomitant]
     Active Substance: METFORMIN HYDROCHLORIDE
     Dosage: METFORMIN HYDROCHLORIDE (500 MG PROLONGED-RELEASE TABLET)
     Route: 048
     Dates: end: 20160712
  2. CANDESARTAN [Concomitant]
     Active Substance: CANDESARTAN
     Dosage: ORION CANDESARTAN CILEXETIL (16 MG TABLET)
     Route: 048
  3. KERLON [Concomitant]
     Route: 048
     Dates: end: 20160712
  4. CANDESARTAN [Concomitant]
     Active Substance: CANDESARTAN
     Route: 048
     Dates: end: 20160712
  5. DIFORMIN RETARD [Concomitant]
     Active Substance: METFORMIN HYDROCHLORIDE
     Dosage: METFORMIN HYDROCHLORIDE (500 MG PROLONGED-RELEASE TABLET)
     Route: 048
  6. JANUVIA [Concomitant]
     Active Substance: SITAGLIPTIN PHOSPHATE
     Route: 048
  7. TAMSULOSIN [Concomitant]
     Active Substance: TAMSULOSIN
     Route: 048
     Dates: end: 20160712
  8. MAREVAN FORTE [Concomitant]
     Active Substance: WARFARIN SODIUM
     Route: 048
     Dates: end: 20160708
  9. DIGOXIN. [Concomitant]
     Active Substance: DIGOXIN
     Dosage: ORION SEMI DIGOXIN (0.125 MG TABLET)
     Route: 048
  10. KLEXANE [Suspect]
     Active Substance: ENOXAPARIN
     Indication: PROPHYLAXIS
     Dosage: KLEXANE ENOXAPARIN SODIUM (100 MG/ML 0.8 ML SOLUTION FOR INJECTION)
     Route: 058
     Dates: start: 20160624, end: 20160706
  11. PRIMASPAN [Concomitant]
     Active Substance: ASPIRIN
     Dosage: ACETYLSALICYLIC ACID (100 MG GASTRO-RESISTANT TABLET)
     Route: 048
  12. SILDENAFIL. [Concomitant]
     Active Substance: SILDENAFIL
     Route: 048
     Dates: end: 20160712
  13. JANUVIA [Concomitant]
     Active Substance: SITAGLIPTIN PHOSPHATE
     Dosage: SITAGLIPTIN (100 MG FILM-COATED TABLET)
     Route: 048
     Dates: end: 20160712
  14. PRIMASPAN [Concomitant]
     Active Substance: ASPIRIN
     Dosage: ACETYLSALICYLIC ACID (100 MG GASTRO-RESISTANT TABLET)
     Route: 048
     Dates: end: 20160712
  15. XATRAL CR [Concomitant]
     Dosage: ALFUZOSIN HYDROCHLORIDE (10 MG PROLONGED-RELEASE TABLET)
     Route: 048
  16. MAREVAN FORTE [Concomitant]
     Active Substance: WARFARIN SODIUM
     Dosage: WARFARIN SODIUM (5 MG TABLET)
     Route: 048
  17. XATRAL CR [Concomitant]
     Dosage: ALFUZOSIN HYDROCHLORIDE (10 MG PROLONGED-RELEASE TABLET)
     Route: 048
     Dates: end: 20160712
  18. LANTUS [Concomitant]
     Active Substance: INSULIN GLARGINE
     Dosage: DOSE:38 UNIT(S)
     Route: 058
     Dates: start: 20160517
  19. DIGOXIN. [Concomitant]
     Active Substance: DIGOXIN
     Route: 048
     Dates: end: 20160712
  20. KERLON [Concomitant]
     Route: 048

REACTIONS (4)
  - Pruritus [Recovered/Resolved]
  - Burning sensation [Recovered/Resolved]
  - Lip swelling [Recovered/Resolved]
  - Urticaria [Recovered/Resolved]

NARRATIVE: CASE EVENT DATE: 20160628
